FAERS Safety Report 9456844 (Version 1)
Quarter: 2013Q3

REPORT INFORMATION
  Report Type: Spontaneous
  Country: US (occurrence: US)
  Receive Date: 20130813
  Receipt Date: 20130813
  Transmission Date: 20140515
  Serious: Yes (Other)
  Sender: FDA-Public Use
  Company Number: US-ACTAVIS-2013-13816

PATIENT
  Sex: Female

DRUGS (1)
  1. MICONAZOLE NITRATE-MICONAZOLE (AMALLC) [Suspect]
     Indication: FUNGAL INFECTION
     Dosage: UNK, DAILY
     Route: 067
     Dates: start: 20130723, end: 20130730

REACTIONS (2)
  - Hypersensitivity [Not Recovered/Not Resolved]
  - Urticaria [Not Recovered/Not Resolved]
